FAERS Safety Report 16601842 (Version 2)
Quarter: 2019Q3

REPORT INFORMATION
  Report Type: Spontaneous
  Country: FR (occurrence: FR)
  Receive Date: 20190719
  Receipt Date: 20190730
  Transmission Date: 20191004
  Serious: Yes (Other)
  Sender: FDA-Public Use
  Company Number: PHHY2019FR163636

PATIENT
  Age: 19 Year
  Sex: Male

DRUGS (16)
  1. ISOTRETINOIN. [Suspect]
     Active Substance: ISOTRETINOIN
     Indication: HIDRADENITIS
  2. ADALIMUMAB [Concomitant]
     Active Substance: ADALIMUMAB
     Indication: HIDRADENITIS
  3. TETRACYCLINE [Concomitant]
     Active Substance: TETRACYCLINE
     Indication: HIDRADENITIS
     Route: 065
  4. CLINDAMYCIN. [Concomitant]
     Active Substance: CLINDAMYCIN
     Indication: HIDRADENITIS
     Route: 065
  5. CLINDAMYCIN. [Concomitant]
     Active Substance: CLINDAMYCIN
     Indication: ACNE FULMINANS
  6. ADALIMUMAB [Concomitant]
     Active Substance: ADALIMUMAB
     Indication: ACNE FULMINANS
  7. ZINC. [Suspect]
     Active Substance: ZINC
     Indication: HIDRADENITIS
     Route: 065
  8. INFLIXIMAB [Concomitant]
     Active Substance: INFLIXIMAB
     Indication: HIDRADENITIS
     Route: 065
  9. RIFAMPICIN [Concomitant]
     Active Substance: RIFAMPIN
     Indication: ACNE FULMINANS
  10. ISOTRETINOIN. [Suspect]
     Active Substance: ISOTRETINOIN
     Indication: ACNE
     Dosage: ISOTRETINOIN COMBINED WITH ORAL STEROIDS
     Route: 065
  11. ISOTRETINOIN. [Suspect]
     Active Substance: ISOTRETINOIN
     Indication: ACNE FULMINANS
  12. ZINC. [Suspect]
     Active Substance: ZINC
     Indication: ACNE FULMINANS
  13. INFLIXIMAB [Concomitant]
     Active Substance: INFLIXIMAB
     Indication: ACNE FULMINANS
  14. DOXYCYCLINE. [Suspect]
     Active Substance: DOXYCYCLINE
     Indication: ACNE
     Dosage: UNK
     Route: 065
  15. TETRACYCLINE [Concomitant]
     Active Substance: TETRACYCLINE
     Indication: ACNE FULMINANS
  16. RIFAMPICIN [Concomitant]
     Active Substance: RIFAMPIN
     Indication: HIDRADENITIS
     Route: 065

REACTIONS (8)
  - Product use in unapproved indication [Recovered/Resolved]
  - Acne fulminans [Recovered/Resolved]
  - Drug ineffective [Recovered/Resolved]
  - Drug resistance [Unknown]
  - Drug ineffective for unapproved indication [Unknown]
  - Hidradenitis [Recovered/Resolved]
  - Condition aggravated [Recovered/Resolved]
  - Off label use [Unknown]
